FAERS Safety Report 9724847 (Version 1)
Quarter: 2013Q4

REPORT INFORMATION
  Report Type: Spontaneous
  Country: US (occurrence: US)
  Receive Date: 20131202
  Receipt Date: 20131202
  Transmission Date: 20140711
  Serious: No
  Sender: FDA-Public Use
  Company Number: US-ENDO PHARMACEUTICALS INC.-OXYC20120013

PATIENT
  Age: 39 Year
  Sex: Male

DRUGS (3)
  1. OXYCODONE HCL 30MG [Suspect]
     Indication: PAIN
     Route: 048
     Dates: start: 201203
  2. OPANA ER 40MG [Concomitant]
     Indication: PAIN
     Route: 048
     Dates: end: 20120303
  3. OPANA 10MG [Concomitant]
     Indication: PAIN
     Route: 048
     Dates: end: 20120303

REACTIONS (4)
  - Drug ineffective [Unknown]
  - Anxiety [Unknown]
  - Abdominal discomfort [Unknown]
  - Nausea [Unknown]
